FAERS Safety Report 8969147 (Version 1)
Quarter: 2012Q4

REPORT INFORMATION
  Report Type: 
  Country: US (occurrence: US)
  Receive Date: 20121218
  Receipt Date: 20121218
  Transmission Date: 20130627
  Serious: No
  Sender: FDA-Public Use
  Company Number: US-009507513-1212USA005427

PATIENT
  Age: 21 Year
  Sex: Female
  Weight: 68.93 kg

DRUGS (1)
  1. NUVARING [Suspect]
     Indication: CONTRACEPTION
     Dosage: 1 ring up to 3 weeks with one ring free break
     Route: 067
     Dates: end: 20121204

REACTIONS (4)
  - Unintended pregnancy [Unknown]
  - Abnormal withdrawal bleeding [Unknown]
  - Inappropriate schedule of drug administration [Unknown]
  - Device expulsion [Unknown]
